FAERS Safety Report 24242496 (Version 2)
Quarter: 2025Q1

REPORT INFORMATION
  Report Type: Spontaneous
  Country: US (occurrence: US)
  Receive Date: 20240823
  Receipt Date: 20250117
  Transmission Date: 20250409
  Serious: Yes (Hospitalization, Other)
  Sender: CSL BEHRING
  Company Number: US-BEH-2024177486

PATIENT
  Age: 20 Year
  Sex: Male

DRUGS (9)
  1. IDELVION [Suspect]
     Active Substance: COAGULATION FACTOR IX RECOMBINANT HUMAN
     Indication: Factor IX deficiency
     Dosage: 2500 IU, QW (STRENGTH: 2000)
     Route: 042
     Dates: start: 202301
  2. IDELVION [Suspect]
     Active Substance: COAGULATION FACTOR IX RECOMBINANT HUMAN
     Indication: Factor IX deficiency
     Dosage: 2500 IU, QW (STRENGTH: 2000)
     Route: 042
     Dates: start: 202301
  3. IDELVION [Suspect]
     Active Substance: COAGULATION FACTOR IX RECOMBINANT HUMAN
     Dosage: 4000 IU, QW (STRENGTH: 2000)
     Route: 042
     Dates: start: 202301
  4. IDELVION [Suspect]
     Active Substance: COAGULATION FACTOR IX RECOMBINANT HUMAN
     Dosage: 4000 IU, QW (STRENGTH: 2000)
     Route: 042
     Dates: start: 202301
  5. IDELVION [Suspect]
     Active Substance: COAGULATION FACTOR IX RECOMBINANT HUMAN
     Dosage: 1500 IU, QW (STRENGTH: 1000)
     Route: 042
     Dates: start: 202301
  6. IDELVION [Suspect]
     Active Substance: COAGULATION FACTOR IX RECOMBINANT HUMAN
     Dosage: 1500 IU, QW (STRENGTH: 1000)
     Route: 042
     Dates: start: 202301
  7. IDELVION [Suspect]
     Active Substance: COAGULATION FACTOR IX RECOMBINANT HUMAN
     Indication: Factor IX deficiency
     Dosage: 3500 IU, QW
     Route: 042
     Dates: start: 202301
  8. IDELVION [Suspect]
     Active Substance: COAGULATION FACTOR IX RECOMBINANT HUMAN
     Indication: Factor IX deficiency
     Dosage: 3500 IU, QW
     Route: 042
     Dates: start: 202301
  9. BENEFIX [Concomitant]
     Active Substance: COAGULATION FACTOR IX RECOMBINANT HUMAN\ISOPROPYL ALCOHOL

REACTIONS (4)
  - Knee operation [Unknown]
  - Haemarthrosis [Unknown]
  - Joint swelling [Unknown]
  - Haemarthrosis [Unknown]

NARRATIVE: CASE EVENT DATE: 20241231
